FAERS Safety Report 24592860 (Version 1)
Quarter: 2024Q4

REPORT INFORMATION
  Report Type: Spontaneous
  Country: US (occurrence: None)
  Receive Date: 20241107
  Receipt Date: 20241107
  Transmission Date: 20250114
  Serious: Yes (Hospitalization)
  Sender: Public
  Company Number: None

PATIENT
  Age: 73 Year
  Sex: Male
  Weight: 191 kg

DRUGS (1)
  1. HYDROCHLOROTHIAZIDE\LISINOPRIL [Suspect]
     Active Substance: HYDROCHLOROTHIAZIDE\LISINOPRIL
     Indication: Hypertension
     Dosage: OTHER FREQUENCY : AM;?
     Route: 048
     Dates: start: 20220912, end: 20240624

REACTIONS (7)
  - Anaphylactic reaction [None]
  - Angioedema [None]
  - Dyspnoea [None]
  - Pharyngeal swelling [None]
  - Choking sensation [None]
  - Obstructive airways disorder [None]
  - Dysphagia [None]

NARRATIVE: CASE EVENT DATE: 20240624
